FAERS Safety Report 5989152-X (Version None)
Quarter: 2008Q4

REPORT INFORMATION
  Report Type: 
  Country: None (occurrence: None)
  Receive Date: 20081210
  Receipt Date: 20081202
  Transmission Date: 20090506
  Serious: Yes (Hospitalization)
  Sender: FDA-Public Use
  Company Number: UY-ABBOTT-08P-168-0490965-00

PATIENT
  Sex: Male
  Weight: 69 kg

DRUGS (2)
  1. ZEMPLAR [Suspect]
     Indication: HYPERPARATHYROIDISM SECONDARY
     Route: 042
     Dates: start: 20080522, end: 20081122
  2. ZEMPLAR [Suspect]
     Route: 042
     Dates: start: 20081122

REACTIONS (1)
  - CHEST PAIN [None]
